FAERS Safety Report 6528561-7 (Version None)
Quarter: 2010Q1

REPORT INFORMATION
  Report Type: 
  Country: None (occurrence: None)
  Receive Date: 20100106
  Receipt Date: 20091228
  Transmission Date: 20100710
  Serious: Yes (Hospitalization)
  Sender: FDA-Public Use
  Company Number: JP-BAYER-200812024BYL

PATIENT
  Age: 61 Year
  Sex: Male
  Weight: 48 kg

DRUGS (10)
  1. NEXAVAR [Suspect]
     Indication: RENAL CELL CARCINOMA
     Dosage: UNIT DOSE: 200 MG
     Route: 048
     Dates: start: 20080722, end: 20080730
  2. NEXAVAR [Suspect]
     Dosage: UNIT DOSE: 200 MG
     Route: 048
     Dates: start: 20080731, end: 20090520
  3. ZOMETA [Suspect]
     Indication: HYPERCALCAEMIA
     Route: 041
  4. NORVASC [Concomitant]
     Indication: HYPERTENSION
     Dosage: UNIT DOSE: 2.5 MG
     Route: 048
     Dates: start: 20080722, end: 20080808
  5. NORVASC [Concomitant]
     Route: 048
     Dates: start: 20080722
  6. ZYLORIC [Concomitant]
     Indication: HYPERURICAEMIA
     Route: 048
     Dates: start: 20080722
  7. FERROMIA [Concomitant]
     Indication: IRON DEFICIENCY ANAEMIA
     Route: 048
     Dates: start: 20080722
  8. NAIXAN [Concomitant]
     Indication: TUMOUR ASSOCIATED FEVER
     Route: 048
     Dates: start: 20080722
  9. URSO 250 [Concomitant]
     Route: 048
     Dates: start: 20080722
  10. LASIX [Concomitant]
     Indication: ASCITES
     Route: 048
     Dates: start: 20080812

REACTIONS (9)
  - ASCITES [None]
  - BLOOD AMYLASE INCREASED [None]
  - HYPERTENSION [None]
  - HYPOPHOSPHATAEMIA [None]
  - PALMAR-PLANTAR ERYTHRODYSAESTHESIA SYNDROME [None]
  - PANCYTOPENIA [None]
  - PLATELET COUNT DECREASED [None]
  - PYREXIA [None]
  - RASH [None]
